FAERS Safety Report 20651361 (Version 1)
Quarter: 2022Q1

REPORT INFORMATION
  Report Type: Spontaneous
  Country: NL (occurrence: NL)
  Receive Date: 20220330
  Receipt Date: 20220330
  Transmission Date: 20220423
  Serious: Yes (Other)
  Sender: FDA-Public Use
  Company Number: NL-LRB-00795176

PATIENT
  Age: 68 Year
  Sex: Female
  Weight: 75 kg

DRUGS (6)
  1. ESOMEPRAZOLE MAGNESIUM DR [Suspect]
     Active Substance: ESOMEPRAZOLE MAGNESIUM
     Indication: Diaphragmatic hernia
     Dosage: 20 MILLIGRAM, DAILY, 1 PER DAY
     Route: 065
     Dates: start: 20220205, end: 20220221
  2. ACETYLSALICYLZUUR TABLET  80MG / Brand name not specifiedACETYLSALI... [Concomitant]
     Indication: Product used for unknown indication
     Dosage: 80 MG ()
     Route: 065
  3. LEVOTHYROXINE TABLET  50UG (NATRIUM) / EUTHYROX TABLET  50MCGEUTHYR... [Concomitant]
     Indication: Product used for unknown indication
     Dosage: TABLET, 50 UG (MICROGRAM) ()
     Route: 065
  4. CANDESARTAN TABLET  8MG / ATACAND TABLET  8MGATACAND TABLET  8MGCAN... [Concomitant]
     Indication: Product used for unknown indication
     Dosage: TABLET, 8 MG (MILLIGRAM) ()
     Route: 065
  5. CANDESARTAN TABLET  4MG / ATACAND TABLET  4MGATACAND TABLET  4MGCAN... [Concomitant]
     Indication: Product used for unknown indication
     Dosage: 4 MG ()
     Route: 065
  6. ALIROCUMAB INJVLST 150MG/ML / PRALUENT INJVLST 150MG/ML PEN 1MLPRAL... [Concomitant]
     Indication: Product used for unknown indication
     Dosage: 150 ()
     Route: 065

REACTIONS (5)
  - Gastric haemorrhage [Recovered/Resolved]
  - Melaena [Recovering/Resolving]
  - Rash [Recovered/Resolved]
  - Therapeutic response unexpected [Unknown]
  - Oesophageal pain [Recovered/Resolved]

NARRATIVE: CASE EVENT DATE: 20220206
